FAERS Safety Report 23954130 (Version 3)
Quarter: 2024Q3

REPORT INFORMATION
  Report Type: Report from Study
  Country: US (occurrence: US)
  Receive Date: 20240609
  Receipt Date: 20240715
  Transmission Date: 20241017
  Serious: Yes (Hospitalization, Other)
  Sender: ABBVIE
  Company Number: US-ABBVIE-5786046

PATIENT
  Age: 32 Year
  Sex: Female
  Weight: 62.142 kg

DRUGS (20)
  1. HUMIRA [Suspect]
     Active Substance: ADALIMUMAB
     Indication: Product used for unknown indication
     Route: 058
  2. REMICADE [Suspect]
     Active Substance: INFLIXIMAB
     Indication: Product used for unknown indication
     Route: 065
  3. CIMZIA [Suspect]
     Active Substance: CERTOLIZUMAB PEGOL
     Indication: Product used for unknown indication
     Route: 065
  4. INFLECTRA [Suspect]
     Active Substance: INFLIXIMAB-DYYB
     Indication: Product used for unknown indication
     Route: 065
  5. STELARA [Suspect]
     Active Substance: USTEKINUMAB
     Indication: Product used for unknown indication
     Route: 065
  6. ENTYVIO [Suspect]
     Active Substance: VEDOLIZUMAB
     Indication: Product used for unknown indication
     Route: 065
  7. PREDNISONE [Concomitant]
     Active Substance: PREDNISONE
     Indication: Product used for unknown indication
     Dosage: 20 MG
     Route: 048
     Dates: start: 202404
  8. PREDNISONE [Concomitant]
     Active Substance: PREDNISONE
     Indication: Product used for unknown indication
     Dosage: 10 MG
     Route: 048
  9. VITAMIN B12 [Concomitant]
     Active Substance: CYANOCOBALAMIN
     Indication: Product used for unknown indication
     Route: 030
  10. CYCLOBENZAPRINE [Concomitant]
     Active Substance: CYCLOBENZAPRINE
     Indication: Product used for unknown indication
     Route: 048
  11. BUSPIRONE HCL [Concomitant]
     Active Substance: BUSPIRONE HYDROCHLORIDE
     Indication: Product used for unknown indication
     Route: 048
  12. Vitamin b-complex with vitamin c [Concomitant]
     Indication: Product used for unknown indication
     Route: 048
  13. POTASSIUM CHLORIDE [Concomitant]
     Active Substance: POTASSIUM CHLORIDE
     Indication: Product used for unknown indication
     Dosage: POTASSIUM CHLORIDE ER 10 MEQ ORAL TABLET EXTENDED RELEASE ONCE A DAY 0 DAYS, 0 REFILLS
     Route: 048
  14. IRON [Concomitant]
     Active Substance: IRON
     Indication: Product used for unknown indication
     Dosage: SUPPLEMENT
  15. INFLECTRA [Concomitant]
     Active Substance: INFLIXIMAB-DYYB
     Indication: Product used for unknown indication
     Route: 042
  16. MESALAMINE [Suspect]
     Active Substance: MESALAMINE
     Indication: Product used for unknown indication
     Route: 065
  17. MERCAPTOPURINE [Suspect]
     Active Substance: MERCAPTOPURINE
     Indication: Product used for unknown indication
     Route: 065
  18. ENTOCORT [Suspect]
     Active Substance: BUDESONIDE
     Indication: Product used for unknown indication
     Route: 065
  19. CLARITIN [Concomitant]
     Active Substance: LORATADINE
     Indication: Product used for unknown indication
     Route: 048
  20. VITAMIN D [Concomitant]
     Active Substance: VITAMIN D NOS
     Indication: Product used for unknown indication
     Dosage: 1.25 MG (50000 UT) ORAL CAPSULE ONCE A WEEK 0 DAYS, O REFILLS
     Route: 048

REACTIONS (34)
  - Ileal ulcer [Not Recovered/Not Resolved]
  - Therapeutic product effect decreased [Unknown]
  - Drug ineffective [Unknown]
  - Illness [Unknown]
  - Haematochezia [Unknown]
  - Hyperhidrosis [Unknown]
  - Insomnia [Unknown]
  - Arthralgia [Unknown]
  - Weight increased [Unknown]
  - Fluid retention [Unknown]
  - Ileal ulcer [Unknown]
  - Arthralgia [Unknown]
  - Intestinal anastomosis [Unknown]
  - Gastrointestinal disorder [Unknown]
  - Haemorrhoids [Unknown]
  - Post procedural complication [Unknown]
  - Enteritis [Unknown]
  - Terminal ileitis [Unknown]
  - Arthritis enteropathic [Unknown]
  - Haemorrhage [Unknown]
  - Occult blood positive [Unknown]
  - Anaphylactic reaction [Unknown]
  - Crohn^s disease [Unknown]
  - Faecal calprotectin increased [Unknown]
  - Abscess rupture [Unknown]
  - Frequent bowel movements [Unknown]
  - Rectal tenesmus [Unknown]
  - Anal haemorrhage [Unknown]
  - Nausea [Unknown]
  - Ileal stenosis [Recovering/Resolving]
  - Gastrointestinal disorder [Recovering/Resolving]
  - Gastrointestinal erosion [Recovering/Resolving]
  - Ileal stenosis [Recovering/Resolving]
  - Anastomotic ulcer [Unknown]

NARRATIVE: CASE EVENT DATE: 20221122
